FAERS Safety Report 11079835 (Version 3)
Quarter: 2015Q2

REPORT INFORMATION
  Report Type: Spontaneous
  Country: JP (occurrence: JP)
  Receive Date: 20150430
  Receipt Date: 20150605
  Transmission Date: 20150821
  Serious: Yes (Death, Hospitalization)
  Sender: FDA-Public Use
  Company Number: PHJP2015JP007006

PATIENT
  Age: 85 Year
  Sex: Male

DRUGS (1)
  1. EXELON PATCH [Suspect]
     Active Substance: RIVASTIGMINE
     Indication: DEMENTIA ALZHEIMER^S TYPE
     Dosage: 9 MG BASE (PATCH 5, 4.6 MG/24HOUR) DAILY
     Route: 062

REACTIONS (4)
  - Chronic myelomonocytic leukaemia [Fatal]
  - Respiratory failure [Fatal]
  - Pyrexia [Fatal]
  - Concomitant disease progression [Fatal]

NARRATIVE: CASE EVENT DATE: 20150424
